FAERS Safety Report 7950022-9 (Version None)
Quarter: 2011Q4

REPORT INFORMATION
  Report Type: 
  Country: None (occurrence: None)
  Receive Date: 20111130
  Receipt Date: 20111121
  Transmission Date: 20120403
  Serious: Yes (Hospitalization, Disabling, Other)
  Sender: FDA-Public Use
  Company Number: US-ABBOTT-11P-163-0876437-00

PATIENT
  Sex: Male
  Weight: 136.2 kg

DRUGS (15)
  1. HYDROXYCUT [Suspect]
     Indication: SUPPLEMENTATION THERAPY
     Dates: start: 20070101
  2. HYDROXYCUT [Suspect]
     Dates: start: 20070101
  3. LIPITOR [Concomitant]
     Indication: PRODUCT USED FOR UNKNOWN INDICATION
     Dates: end: 20070601
  4. HYDROXYCUT [Suspect]
     Dates: start: 20090401
  5. HYDROXYCUT [Suspect]
     Dates: start: 20071101
  6. LISINOPRIL [Suspect]
     Indication: HYPERTENSION
     Dates: end: 20080610
  7. DIOVAN [Concomitant]
     Indication: PRODUCT USED FOR UNKNOWN INDICATION
  8. PLENDIL [Concomitant]
     Indication: PRODUCT USED FOR UNKNOWN INDICATION
  9. ATARAX [Concomitant]
     Indication: PRODUCT USED FOR UNKNOWN INDICATION
  10. VICODIN [Suspect]
     Indication: BACK PAIN
  11. CLONIDINE [Concomitant]
     Indication: PRODUCT USED FOR UNKNOWN INDICATION
  12. TENORETIC 100 [Concomitant]
     Indication: PRODUCT USED FOR UNKNOWN INDICATION
  13. HYDROXYCUT [Suspect]
     Dates: start: 20070101
  14. HYDROXYCUT [Suspect]
     Dates: start: 20090201
  15. HYDROCHLOROTHIAZIDE [Suspect]
     Indication: HYPERTENSION
     Dates: start: 20030822, end: 20080610

REACTIONS (46)
  - ANXIETY [None]
  - BACK PAIN [None]
  - ALANINE AMINOTRANSFERASE INCREASED [None]
  - BLOOD CHOLESTEROL INCREASED [None]
  - VISION BLURRED [None]
  - UPPER RESPIRATORY TRACT INFECTION [None]
  - PAIN [None]
  - JOINT INJURY [None]
  - ADVERSE DRUG REACTION [None]
  - BLOOD GLUCOSE INCREASED [None]
  - LOW DENSITY LIPOPROTEIN INCREASED [None]
  - BLOOD TRIGLYCERIDES INCREASED [None]
  - LIGAMENT SPRAIN [None]
  - DIZZINESS [None]
  - WRIST FRACTURE [None]
  - OSTEOARTHRITIS [None]
  - NAUSEA [None]
  - URINARY TRACT INFECTION [None]
  - GLUCOSE URINE PRESENT [None]
  - CHEST PAIN [None]
  - RASH [None]
  - HEAD INJURY [None]
  - SPINAL COMPRESSION FRACTURE [None]
  - INJURY [None]
  - PAIN IN EXTREMITY [None]
  - RASH PUSTULAR [None]
  - DIABETES MELLITUS [None]
  - STAB WOUND [None]
  - FEAR [None]
  - NERVOUSNESS [None]
  - MEMORY IMPAIRMENT [None]
  - HYPOAESTHESIA [None]
  - EMOTIONAL DISTRESS [None]
  - EMOTIONAL DISORDER [None]
  - THYROID NEOPLASM [None]
  - ASPARTATE AMINOTRANSFERASE INCREASED [None]
  - GLYCOSYLATED HAEMOGLOBIN INCREASED [None]
  - PRODUCTIVE COUGH [None]
  - DYSPNOEA [None]
  - ARTHRALGIA [None]
  - FATIGUE [None]
  - ACTIVITIES OF DAILY LIVING IMPAIRED [None]
  - FALL [None]
  - SLEEP APNOEA SYNDROME [None]
  - SNORING [None]
  - CELLULITIS [None]
